FAERS Safety Report 12390034 (Version 3)
Quarter: 2016Q2

REPORT INFORMATION
  Report Type: Spontaneous
  Country: ES (occurrence: ES)
  Receive Date: 20160520
  Receipt Date: 20160623
  Transmission Date: 20160815
  Serious: Yes (Hospitalization)
  Sender: FDA-Public Use
  Company Number: ES-JNJFOC-20160516359

PATIENT
  Age: 54 Year
  Sex: Male
  Weight: 34.02 kg

DRUGS (3)
  1. METHOTREXATE [Concomitant]
     Active Substance: METHOTREXATE
     Indication: PSORIASIS
     Route: 058
     Dates: start: 20140704, end: 20140902
  2. ISONIAZID W/PYRIDOXINE [Concomitant]
     Active Substance: ISONIAZID\PYRIDOXINE
     Indication: LATENT TUBERCULOSIS
     Route: 065
     Dates: start: 20140113, end: 20141013
  3. REMICADE [Suspect]
     Active Substance: INFLIXIMAB
     Indication: PUSTULAR PSORIASIS
     Route: 042
     Dates: start: 20140704, end: 20140814

REACTIONS (1)
  - Pneumocystis jirovecii pneumonia [Recovered/Resolved]

NARRATIVE: CASE EVENT DATE: 20140830
